FAERS Safety Report 22716678 (Version 2)
Quarter: 2023Q4

REPORT INFORMATION
  Report Type: Spontaneous
  Country: US (occurrence: US)
  Receive Date: 20230718
  Receipt Date: 20231211
  Transmission Date: 20240109
  Serious: Yes (Life-Threatening, Hospitalization)
  Sender: FDA-Public Use
  Company Number: US-UPSHER-SMITH LABORATORIES, LLC-2023USL00637

PATIENT
  Sex: Male

DRUGS (5)
  1. AMANTADINE HYDROCHLORIDE [Suspect]
     Active Substance: AMANTADINE HYDROCHLORIDE
     Dosage: 400 MG, 1X/DAY (HIGH-DOSE) ^PILLS^
     Route: 048
  2. AMANTADINE HYDROCHLORIDE [Suspect]
     Active Substance: AMANTADINE HYDROCHLORIDE
     Dosage: 400 MG, 1X/DAY (RESUMED ON HD 12)
     Route: 050
  3. AMANTADINE HYDROCHLORIDE [Suspect]
     Active Substance: AMANTADINE HYDROCHLORIDE
     Dosage: 300 MG, 1X/DAY
  4. RILUZOLE [Suspect]
     Active Substance: RILUZOLE
     Indication: Off label use
     Dosage: 100 MG, 1X/DAY
     Route: 048
  5. UNSPECIFIED INGREDIENT [Concomitant]
     Active Substance: UNSPECIFIED INGREDIENT

REACTIONS (4)
  - Encephalopathy [Recovered/Resolved]
  - Withdrawal syndrome [Recovered/Resolved]
  - Pneumonia aspiration [Recovering/Resolving]
  - Acute respiratory failure [Recovered/Resolved]
